FAERS Safety Report 10358354 (Version 3)
Quarter: 2014Q4

REPORT INFORMATION
  Report Type: Report from Study
  Country: KR (occurrence: KR)
  Receive Date: 20140801
  Receipt Date: 20141023
  Transmission Date: 20150528
  Serious: Yes (Hospitalization, Other)
  Sender: FDA-Public Use
  Company Number: KR-B.I. PHARMACEUTICALS,INC./RIDGEFIELD-2012-CS-00633CS

PATIENT
  Age: 73 Year
  Sex: Female
  Weight: 57 kg

DRUGS (2)
  1. OLICLINOMEL [Suspect]
     Active Substance: AMINO ACIDS\DEXTROSE\ELECTROLYTES NOS\SOYBEAN OIL
     Indication: PARENTERAL NUTRITION
     Dosage: 1500 ML
     Route: 042
     Dates: start: 20120502, end: 20120504
  2. BIBW 2992 [Suspect]
     Active Substance: AFATINIB
     Indication: ADENOCARCINOMA
     Dosage: 50 MG
     Route: 048
     Dates: start: 20120412, end: 20120906

REACTIONS (5)
  - Syncope [Recovered/Resolved]
  - Vision blurred [Not Recovered/Not Resolved]
  - Diarrhoea [Recovered/Resolved]
  - Malignant neoplasm progression [Unknown]
  - Diarrhoea [Recovered/Resolved]

NARRATIVE: CASE EVENT DATE: 20120428
